FAERS Safety Report 15594104 (Version 1)
Quarter: 2018Q4

REPORT INFORMATION
  Report Type: Spontaneous
  Country: FR (occurrence: FR)
  Receive Date: 20181106
  Receipt Date: 20181106
  Transmission Date: 20190205
  Serious: Yes (Hospitalization)
  Sender: FDA-Public Use
  Company Number: FR-SAKK-2018SA302132AA

PATIENT
  Age: 88 Year
  Sex: Male

DRUGS (2)
  1. PREVISCAN [FLUINDIONE] [Suspect]
     Active Substance: FLUINDIONE
     Indication: ATRIAL FIBRILLATION
     Dosage: IN EVENING
     Route: 048
     Dates: start: 20130611
  2. LOVENOX [Suspect]
     Active Substance: ENOXAPARIN SODIUM
     Indication: ATRIAL FIBRILLATION
     Dosage: 1 SYRINGE MORNING AND EVENING
     Route: 058
     Dates: start: 20180302, end: 20180316

REACTIONS (3)
  - Haemorrhagic anaemia [Recovered/Resolved]
  - International normalised ratio increased [Recovered/Resolved]
  - Melaena [Recovered/Resolved]

NARRATIVE: CASE EVENT DATE: 20180312
